FAERS Safety Report 8461048 (Version 6)
Quarter: 2013Q1

REPORT INFORMATION
  Report Type: Spontaneous
  Country: SE (occurrence: SE)
  Receive Date: 20120315
  Receipt Date: 20130222
  Transmission Date: 20140127
  Serious: Yes (Death, Hospitalization)
  Sender: FDA-Public Use
  Company Number: SE-ROCHE-1046733

PATIENT
  Sex: Male

DRUGS (7)
  1. MABTHERA [Suspect]
     Indication: B-CELL LYMPHOMA
     Route: 050
     Dates: start: 201201
  2. CYCLOPHOSPHAMIDE [Concomitant]
     Indication: LYMPHOMA
     Route: 042
     Dates: start: 20120103, end: 20120103
  3. HYDROXYDAUNORUBICIN [Concomitant]
     Indication: LYMPHOMA
     Route: 042
     Dates: start: 20120103, end: 20120103
  4. ONCOVIN [Concomitant]
     Indication: LYMPHOMA
     Route: 042
     Dates: start: 20120103, end: 20120312
  5. PREDNISONE [Concomitant]
     Indication: LYMPHOMA
     Route: 065
     Dates: start: 201201
  6. METHOTREXATE [Concomitant]
     Indication: LYMPHOMA
     Route: 042
     Dates: start: 20120103, end: 20120103
  7. ZEFFIX [Concomitant]
     Indication: HEPATITIS B
     Route: 048
     Dates: start: 20111227, end: 20120302

REACTIONS (1)
  - Progressive multifocal leukoencephalopathy [Fatal]
